FAERS Safety Report 21340097 (Version 1)
Quarter: 2022Q3

REPORT INFORMATION
  Report Type: Spontaneous
  Country: CN (occurrence: CN)
  Receive Date: 20220916
  Receipt Date: 20220916
  Transmission Date: 20221027
  Serious: Yes (Hospitalization, Other)
  Sender: FDA-Public Use
  Company Number: None

PATIENT
  Age: 5 Year
  Sex: Male
  Weight: 14.5 kg

DRUGS (5)
  1. CYCLOPHOSPHAMIDE [Suspect]
     Active Substance: CYCLOPHOSPHAMIDE
     Indication: Acute lymphocytic leukaemia
     Dosage: 0.64 G, QD (DILUTED WITH 0.9% SODIUM CHLORIDE INJECTION 50 ML)
     Route: 041
     Dates: start: 20220718, end: 20220718
  2. SODIUM CHLORIDE [Suspect]
     Active Substance: SODIUM CHLORIDE
     Indication: Medication dilution
     Dosage: 50 ML, QD (DILUTED WITH CYCLOPHOSPHAMIDE FOR INJECTION 0.64 G)
     Route: 041
     Dates: start: 20220718, end: 20220718
  3. SODIUM CHLORIDE [Suspect]
     Active Substance: SODIUM CHLORIDE
     Dosage: 20 ML, QD (DILUTED WITH VINCRISTINE SULFATE FOR INJECTION 1 MG)
     Route: 041
     Dates: start: 20220718, end: 20220718
  4. VINCRISTINE SULFATE [Suspect]
     Active Substance: VINCRISTINE SULFATE
     Indication: Acute lymphocytic leukaemia
     Dosage: 1 MG, QD (DILUTED WITH 0.9% SODIUM CHLORIDE INJECTION 20ML)
     Route: 041
     Dates: start: 20220718, end: 20220718
  5. PEGASPARGASE [Suspect]
     Active Substance: PEGASPARGASE
     Indication: Acute lymphocytic leukaemia
     Dosage: 1 ML, QD
     Route: 030

REACTIONS (1)
  - Myelosuppression [Recovering/Resolving]

NARRATIVE: CASE EVENT DATE: 20220731
